FAERS Safety Report 7637223-4 (Version None)
Quarter: 2011Q3

REPORT INFORMATION
  Report Type: 
  Country: None (occurrence: None)
  Receive Date: 20110726
  Receipt Date: 20110712
  Transmission Date: 20111222
  Serious: Yes (Hospitalization)
  Sender: FDA-Public Use
  Company Number: PHHY2011KR63126

PATIENT

DRUGS (13)
  1. METHIMAZOLE [Concomitant]
     Dosage: UNK UKN, UNK
  2. AMITRIPTYLINE HCL [Concomitant]
     Dosage: UNK UKN, UNK
  3. FUNGIZONE [Suspect]
     Dosage: UNK UKN, UNK
  4. BENPROPERINE PHOSPHATE [Concomitant]
  5. FAMOTIDINE [Concomitant]
     Dosage: UNK UKN, UNK
  6. HYDROCORTISONE SODIUM SUCCINATE [Concomitant]
     Dosage: UNK UKN, UNK
  7. GINKGO BILOBA LEAF EXTRACT [Concomitant]
     Dosage: UNK UKN, UNK
  8. NEURONTIN [Concomitant]
     Dosage: UNK UKN, UNK
  9. RANITIDINE HYDROCHLORIDE [Concomitant]
     Dosage: UNK UKN, UNK
  10. TRANEXAMIC ACID [Concomitant]
     Dosage: UNK UKN, UNK
  11. FOLIC ACID [Concomitant]
     Dosage: UNK UKN, UNK
  12. TEGRETOL [Suspect]
     Dosage: UNK UKN, UNK
  13. METHYLPREDNISOLONE SODIUM SUCCINATE [Concomitant]
     Dosage: 125 MG, UNK

REACTIONS (5)
  - COUGH [None]
  - PYREXIA [None]
  - HYPOKALAEMIA [None]
  - DYSPNOEA [None]
  - FEELING COLD [None]
